FAERS Safety Report 9770393 (Version 2)
Quarter: 2013Q4

REPORT INFORMATION
  Report Type: Report from Study
  Country: US (occurrence: US)
  Receive Date: 20131218
  Receipt Date: 20131218
  Transmission Date: 20140711
  Serious: Yes (Other)
  Sender: FDA-Public Use
  Company Number: US-009507513-1110USA01963

PATIENT
  Age: 88 Year
  Sex: Male
  Weight: 83.92 kg

DRUGS (13)
  1. EZETIMIBE (+) SIMVASTATIN [Suspect]
     Indication: ACUTE CORONARY SYNDROME
     Dosage: 10-40
     Route: 048
     Dates: start: 20070226
  2. NITROGLYCERIN [Concomitant]
     Dosage: TOTAL DAILY DOSE 0.4 MG, PRN
     Route: 060
     Dates: start: 20070223
  3. PROAIR (ALBUTEROL SULFATE) [Concomitant]
     Dosage: TOTAL DAILY DOSE 1-2 PUFFS Q 6 HOURS, PRN
     Route: 055
     Dates: start: 20100722
  4. PAXIL [Concomitant]
     Dosage: TOTAL DAILY DOSE 40 MG
     Route: 048
     Dates: start: 20070223
  5. ZYMAR [Concomitant]
     Dosage: TOTAL DAILY DOSE 2 DROPS 0.3%
     Route: 047
     Dates: start: 20100703
  6. ALPRAZOLAM [Concomitant]
     Dosage: TOTAL DAILY DOSE 0.25  MG, PRN
     Route: 048
     Dates: start: 20081124
  7. ADVAIR [Concomitant]
     Dosage: TOTAL DAILY DOSE 500/100
     Route: 055
     Dates: start: 20070718
  8. ASPIRIN [Concomitant]
     Dosage: TOTAL DAILY DOSE 81 MG
     Route: 048
     Dates: start: 20070226
  9. CARVEDILOL [Concomitant]
     Dosage: TOTAL DAILY DOSE 20 MG
     Route: 048
     Dates: start: 20100210
  10. ISOSORBIDE [Concomitant]
     Dosage: TOTAL DAILY DOSE 60 MG
     Route: 048
     Dates: start: 20100215
  11. XIBROM [Concomitant]
     Dosage: TOTAL DAILY DOSE 0.09% 2 DROPS
     Route: 047
     Dates: start: 20100703
  12. PRED FORTE [Concomitant]
     Dosage: TOTAL DAILY DOSE 3 DROPS
     Route: 047
     Dates: start: 20100703
  13. CLOPIDOGREL [Concomitant]
     Dosage: TOTAL DAILY DOSE 75 MG
     Route: 048
     Dates: start: 20070226

REACTIONS (2)
  - Malignant melanoma in situ [Recovered/Resolved]
  - Malignant melanoma in situ [Recovered/Resolved]
